FAERS Safety Report 19407117 (Version 1)
Quarter: 2021Q2

REPORT INFORMATION
  Report Type: Spontaneous
  Country: DE (occurrence: DE)
  Receive Date: 20210611
  Receipt Date: 20210611
  Transmission Date: 20210717
  Serious: Yes (Hospitalization)
  Sender: FDA-Public Use
  Company Number: DE-TEVA-2021-DE-1919801

PATIENT
  Age: 56 Year
  Sex: Female
  Weight: 103 kg

DRUGS (16)
  1. SPIRONOLACTON [Suspect]
     Active Substance: SPIRONOLACTONE
     Dosage: 4 DOSAGE FORMS DAILY; 50 MG, 2?2?0?0
     Route: 048
  2. LACTULOSE. [Concomitant]
     Active Substance: LACTULOSE
     Dosage: 30 ML DAILY;  1?1?1?0
     Route: 048
  3. HEPA?MERZ 6000 [Concomitant]
     Dosage: 18 GRAM DAILY; 1?1?1?0
     Route: 048
  4. PANTOPRAZOL [Concomitant]
     Active Substance: PANTOPRAZOLE SODIUM
     Dosage: 20 MILLIGRAM DAILY;  1?0?0?0
     Route: 048
  5. APIXABAN [Concomitant]
     Active Substance: APIXABAN
     Dosage: 5 MILLIGRAM DAILY;  1?0?1?0
     Route: 048
  6. INSULIN GLARGIN [Concomitant]
     Active Substance: INSULIN GLARGINE
     Dosage: 16 IU (INTERNATIONAL UNIT) DAILY; 16 IU, 0?0?0?1,
     Route: 058
  7. METAMIZOL [Concomitant]
     Active Substance: METAMIZOLE SODIUM
     Dosage: 4 GRAM DAILY; 1?1?1?1
     Route: 048
  8. FUROSEMID [Suspect]
     Active Substance: FUROSEMIDE
     Dosage: 40 MG, 2?2?0.5?0
     Route: 048
  9. THIAMIN (VITAMIN B1) [Concomitant]
     Dosage: 100 MILLIGRAM DAILY;  1?0?0?0
     Route: 048
  10. KALIUM [Concomitant]
     Active Substance: POTASSIUM CHLORIDE
     Dosage: 12 DOSAGE FORMS DAILY; 8 MMOL, 3?3?3?3
     Route: 048
  11. HUMALOG [Concomitant]
     Active Substance: INSULIN LISPRO
     Dosage: ACCORDING TO THE PATIENT SCHEME
     Route: 058
  12. BISOPROLOL [Concomitant]
     Active Substance: BISOPROLOL
     Dosage: 2.5 MILLIGRAM DAILY;  0?0?1?0
     Route: 048
  13. LEVOTHYROXIN?NATRIUM [Concomitant]
     Active Substance: LEVOTHYROXINE SODIUM
     Dosage: 150 MICROGRAM DAILY;  1?0?0?0
     Route: 048
  14. NALOXONE W/OXYCODONE [Concomitant]
     Active Substance: NALOXONE HYDROCHLORIDE\OXYCODONE HYDROCHLORIDE
     Dosage: 2 DOSAGE FORMS DAILY; 5|10 MG, 1?0?1?0
     Route: 048
  15. XIPAMID [Suspect]
     Active Substance: XIPAMIDE
     Dosage: 10 MILLIGRAM DAILY;  1?0?0?0
     Route: 048
  16. COLECALCIFEROL (VITAMIN D) [Concomitant]
     Active Substance: CHOLECALCIFEROL
     Dosage: 1000 IU (INTERNATIONAL UNIT) DAILY; 1?0?0?0
     Route: 048

REACTIONS (3)
  - Weight increased [Unknown]
  - Condition aggravated [Unknown]
  - Renal impairment [Unknown]
